FAERS Safety Report 16939464 (Version 1)
Quarter: 2019Q4

REPORT INFORMATION
  Report Type: Spontaneous
  Country: LB (occurrence: LB)
  Receive Date: 20191021
  Receipt Date: 20191021
  Transmission Date: 20200122
  Serious: Yes (Hospitalization, Other)
  Sender: FDA-Public Use
  Company Number: LB-PIRAMAL ENTERPRISES LIMITED-2019-PEL-000294

PATIENT

DRUGS (8)
  1. AUGMENTIN [Concomitant]
     Active Substance: AMOXICILLIN\CLAVULANATE POTASSIUM
     Indication: PRODUCT USED FOR UNKNOWN INDICATION
     Dosage: 50 PER KILOGRAM
     Route: 042
     Dates: start: 20190920
  2. PROPOFOL. [Concomitant]
     Active Substance: PROPOFOL
     Indication: INDUCTION OF ANAESTHESIA
     Dosage: 4 MILLIGRAM/KILOGRAM
     Route: 042
     Dates: start: 20190920
  3. ROCURONIUM [Concomitant]
     Active Substance: ROCURONIUM BROMIDE
     Indication: PRODUCT USED FOR UNKNOWN INDICATION
     Dosage: 0.5 MICROGRAM/KILOGRAM
     Route: 042
     Dates: start: 20190920
  4. SEVOFLURANE. [Suspect]
     Active Substance: SEVOFLURANE
     Indication: ANAESTHESIA
     Dosage: MAC 2.4
     Dates: start: 20190920
  5. DICLOFENAC [Concomitant]
     Active Substance: DICLOFENAC
     Indication: ANALGESIC THERAPY
     Dosage: 12.5 MILLIGRAM
     Route: 054
     Dates: start: 20190920
  6. MIDAZOLAM [Concomitant]
     Active Substance: MIDAZOLAM HYDROCHLORIDE
     Indication: PREMEDICATION
     Dosage: 1 MILLIGRAM
     Route: 042
     Dates: start: 20190920
  7. PARACETAMOL [Concomitant]
     Active Substance: ACETAMINOPHEN
     Indication: ANALGESIC THERAPY
     Dosage: 15 MILLIGRAM/KILOGRAM
     Route: 042
     Dates: start: 20190920
  8. FENTANYL. [Concomitant]
     Active Substance: FENTANYL
     Indication: ANALGESIC THERAPY
     Dosage: 1 GAMMA/KG
     Route: 042
     Dates: start: 20190920

REACTIONS (8)
  - Bronchospasm [Recovered/Resolved]
  - Respiratory tract irritation [Recovered/Resolved]
  - Oxygen saturation decreased [Recovered/Resolved]
  - Toxicity to various agents [Recovered/Resolved]
  - Respiratory tract haemorrhage [Recovered/Resolved]
  - Pulmonary oedema [Recovered/Resolved]
  - Delayed recovery from anaesthesia [Recovered/Resolved]
  - Increased bronchial secretion [Recovered/Resolved]

NARRATIVE: CASE EVENT DATE: 20190920
